FAERS Safety Report 7157927-X (Version None)
Quarter: 2010Q4

REPORT INFORMATION
  Report Type: 
  Country: None (occurrence: None)
  Receive Date: 20101214
  Receipt Date: 20101206
  Transmission Date: 20110411
  Serious: Yes (Hospitalization, Other)
  Sender: FDA-Public Use
  Company Number: US-MERCK-0708USA00144

PATIENT
  Age: 49 Year
  Sex: Female
  Weight: 52 kg

DRUGS (1)
  1. FOSAMAX [Suspect]
     Indication: OSTEOPOROSIS
     Route: 048
     Dates: start: 20000218, end: 20051013

REACTIONS (32)
  - ADVERSE DRUG REACTION [None]
  - ARTHRALGIA [None]
  - ATRIAL FIBRILLATION [None]
  - BICUSPID AORTIC VALVE [None]
  - CANDIDIASIS [None]
  - CARDIAC MURMUR [None]
  - CAROTID ARTERY ANEURYSM [None]
  - CEREBROVASCULAR ACCIDENT [None]
  - DENTAL CARIES [None]
  - DYSFUNCTIONAL UTERINE BLEEDING [None]
  - HAEMATOMA [None]
  - HAEMORRHOIDS [None]
  - HERNIA [None]
  - HYPOAESTHESIA [None]
  - INFLAMMATION [None]
  - IRON DEFICIENCY ANAEMIA [None]
  - JOINT SWELLING [None]
  - MENORRHAGIA [None]
  - OSTEOMYELITIS [None]
  - OSTEONECROSIS OF JAW [None]
  - OSTEOPENIA [None]
  - PSORIASIS [None]
  - PUPILLARY REFLEX IMPAIRED [None]
  - SECRETION DISCHARGE [None]
  - SUPRAVENTRICULAR TACHYCARDIA [None]
  - THROMBOPHLEBITIS SUPERFICIAL [None]
  - TOOTH ABSCESS [None]
  - UPPER RESPIRATORY TRACT INFECTION [None]
  - URINARY TRACT DISORDER [None]
  - URINARY TRACT INFECTION [None]
  - UTERINE DISORDER [None]
  - VISUAL IMPAIRMENT [None]
